FAERS Safety Report 12950430 (Version 16)
Quarter: 2019Q4

REPORT INFORMATION
  Report Type: Report from Study
  Country: US (occurrence: US)
  Receive Date: 20161116
  Receipt Date: 20191126
  Transmission Date: 20200122
  Serious: Yes (Other)
  Sender: FDA-Public Use
  Company Number: US-ACTELION-A-NJ2016-138325

PATIENT
  Age: 49 Year
  Sex: Female

DRUGS (6)
  1. VELETRI [Suspect]
     Active Substance: EPOPROSTENOL
     Indication: PULMONARY ARTERIAL HYPERTENSION
     Dosage: 32 NG/KG, PER MIN
     Route: 042
  2. VELETRI [Suspect]
     Active Substance: EPOPROSTENOL
     Dosage: UNK
     Route: 042
  3. VELETRI [Suspect]
     Active Substance: EPOPROSTENOL
     Dosage: 27.5 NG/KG, PER MIN
     Route: 042
  4. ADEMPAS [Suspect]
     Active Substance: RIOCIGUAT
     Indication: PULMONARY ARTERIAL HYPERTENSION
     Dosage: 0.5 MG, TID
     Route: 065
  5. VELETRI [Suspect]
     Active Substance: EPOPROSTENOL
     Dosage: 4.5 NG/KG PER MIN
     Route: 042
     Dates: start: 20160609
  6. VELETRI [Suspect]
     Active Substance: EPOPROSTENOL
     Dosage: 26 NG/KG, PER MIN
     Route: 042

REACTIONS (31)
  - Weight decreased [Unknown]
  - Urinary tract infection [Unknown]
  - Device leakage [Recovering/Resolving]
  - Catheter site pain [Unknown]
  - Catheter site infection [Unknown]
  - Catheter site vesicles [Unknown]
  - Heart rate decreased [Recovering/Resolving]
  - Dizziness [Unknown]
  - Cataract operation [Unknown]
  - Discomfort [Unknown]
  - Pain in jaw [Unknown]
  - Headache [Unknown]
  - Wheelchair user [Unknown]
  - Eructation [Unknown]
  - Myalgia [Unknown]
  - Sinus pain [Unknown]
  - Malaise [Unknown]
  - Upper respiratory tract infection [Unknown]
  - Catheter site haemorrhage [Unknown]
  - Renal stone removal [Unknown]
  - Oxygen therapy [Unknown]
  - Infusion site scab [Unknown]
  - Retching [Unknown]
  - Flushing [Unknown]
  - Nausea [Unknown]
  - Decreased appetite [Unknown]
  - Fatigue [Unknown]
  - Cystitis [Unknown]
  - Gastrointestinal disorder [Unknown]
  - Rash [Unknown]
  - Dyspnoea exertional [Unknown]

NARRATIVE: CASE EVENT DATE: 20160923
